FAERS Safety Report 10267200 (Version 1)
Quarter: 2014Q2

REPORT INFORMATION
  Report Type: Spontaneous
  Country: JP (occurrence: JP)
  Receive Date: 20140630
  Receipt Date: 20140630
  Transmission Date: 20141212
  Serious: Yes (Hospitalization, Other)
  Sender: FDA-Public Use
  Company Number: JP-JNJFOC-20140616110

PATIENT
  Age: 45 Year
  Sex: Male

DRUGS (1)
  1. RISPERDAL [Suspect]
     Indication: SCHIZOPHRENIA
     Route: 048
     Dates: start: 20140603

REACTIONS (6)
  - Fall [Unknown]
  - Head banging [Unknown]
  - Vomiting [Unknown]
  - Loss of consciousness [Unknown]
  - Hyponatraemia [Unknown]
  - Pneumonia aspiration [Unknown]
